FAERS Safety Report 13345410 (Version 1)
Quarter: 2017Q1

REPORT INFORMATION
  Report Type: Spontaneous
  Country: GB (occurrence: GB)
  Receive Date: 20170317
  Receipt Date: 20170317
  Transmission Date: 20170428
  Serious: Yes (Hospitalization)
  Sender: FDA-Public Use
  Company Number: GB-BAYER-2017-044527

PATIENT
  Age: 71 Year
  Sex: Female
  Weight: 66.8 kg

DRUGS (11)
  1. LISINOPRIL. [Suspect]
     Active Substance: LISINOPRIL
     Indication: HYPERTENSION
     Dosage: 2.5 MG, QD
     Route: 048
     Dates: start: 20150708
  2. LISINOPRIL. [Suspect]
     Active Substance: LISINOPRIL
     Indication: HYPERTENSION
     Dosage: 2.5 MG, QD
     Dates: start: 20150708
  3. NAPROXEN SODIUM ({= 220 MG) [Suspect]
     Active Substance: NAPROXEN SODIUM
     Indication: GOUT
     Dosage: UNK, QD
     Dates: start: 20150624, end: 20150703
  4. OMEPRAZOLE. [Concomitant]
     Active Substance: OMEPRAZOLE
     Indication: PROPHYLAXIS
     Dosage: 40 MG, QD
     Dates: start: 20150219
  5. LISINOPRIL. [Suspect]
     Active Substance: LISINOPRIL
     Indication: HYPERTENSION
     Dosage: 10 MG, QD
     Dates: end: 20150704
  6. SILDENAFIL CITRATE. [Concomitant]
     Active Substance: SILDENAFIL CITRATE
     Indication: PULMONARY ARTERIAL HYPERTENSION
     Dosage: 75 MG, QD
     Dates: start: 20140522
  7. LISINOPRIL. [Suspect]
     Active Substance: LISINOPRIL
     Indication: HYPERTENSION
     Dosage: 20 MG, BID
     Route: 048
     Dates: end: 20150610
  8. NIFEDIPINE. [Suspect]
     Active Substance: NIFEDIPINE
     Indication: HYPERTENSION
     Dosage: 20 MG, QD
     Route: 048
     Dates: end: 20150704
  9. ALLOPURINOL. [Concomitant]
     Active Substance: ALLOPURINOL
     Indication: GOUT
     Dosage: 100 MG, QD
     Dates: start: 20150601
  10. FUROSEMIDE. [Concomitant]
     Active Substance: FUROSEMIDE
     Indication: PULMONARY ARTERIAL HYPERTENSION
     Dosage: 40 MG, QD
     Dates: start: 20150427
  11. NAPROXEN SODIUM ({= 220 MG) [Suspect]
     Active Substance: NAPROXEN SODIUM
     Indication: GOUT
     Dosage: 1000 MG, QD
     Dates: start: 20150521, end: 20150528

REACTIONS (1)
  - Acute kidney injury [Recovered/Resolved]

NARRATIVE: CASE EVENT DATE: 20150701
